FAERS Safety Report 11723843 (Version 2)
Quarter: 2015Q4

REPORT INFORMATION
  Report Type: Report from Study
  Country: US (occurrence: US)
  Receive Date: 20151111
  Receipt Date: 20151125
  Transmission Date: 20160304
  Serious: Yes (Hospitalization, Other)
  Sender: FDA-Public Use
  Company Number: US-GILEAD-2015-0179730

PATIENT
  Age: 69 Year
  Sex: Male
  Weight: 75.39 kg

DRUGS (16)
  1. OFLOXACIN. [Concomitant]
     Active Substance: OFLOXACIN
  2. MULTIVITAMIN                       /00097801/ [Concomitant]
     Active Substance: VITAMINS
  3. LEVAQUIN [Concomitant]
     Active Substance: LEVOFLOXACIN
  4. CIPROFLOXACIN. [Concomitant]
     Active Substance: CIPROFLOXACIN
  5. CORTISPORIN                        /00271401/ [Concomitant]
  6. OXYCODONE [Concomitant]
     Active Substance: OXYCODONE
  7. ZYRTEC [Concomitant]
     Active Substance: CETIRIZINE HYDROCHLORIDE
  8. SPIRONOLACTONE. [Concomitant]
     Active Substance: SPIRONOLACTONE
  9. FLONASE                            /00908302/ [Concomitant]
     Active Substance: MOMETASONE FUROATE
  10. PROBIOTIC                          /06395501/ [Concomitant]
     Active Substance: BIFIDOBACTERIUM ANIMALIS SUBSP. LACTIS
  11. LASIX [Concomitant]
     Active Substance: FUROSEMIDE
  12. LEDIPASVIR/SOFOSBUVIR [Suspect]
     Active Substance: LEDIPASVIR\SOFOSBUVIR
     Indication: HEPATITIS C
     Dosage: 1 DF, QD
     Route: 048
     Dates: start: 20150319, end: 20150428
  13. LACTULOSE. [Concomitant]
     Active Substance: LACTULOSE
  14. NADOLOL. [Concomitant]
     Active Substance: NADOLOL
  15. XIFAXAN [Concomitant]
     Active Substance: RIFAXIMIN
  16. SOFOSBUVIR [Suspect]
     Active Substance: SOFOSBUVIR
     Indication: HEPATITIS C
     Dosage: 1000 MG, QD
     Route: 048
     Dates: start: 20150319, end: 20150417

REACTIONS (2)
  - Hepatic encephalopathy [Unknown]
  - Haemolytic anaemia [Recovering/Resolving]

NARRATIVE: CASE EVENT DATE: 20150417
